FAERS Safety Report 15894101 (Version 2)
Quarter: 2019Q1

REPORT INFORMATION
  Report Type: Spontaneous
  Country: US (occurrence: US)
  Receive Date: 20190131
  Receipt Date: 20190205
  Transmission Date: 20190417
  Serious: No
  Sender: FDA-Public Use
  Company Number: US-SCIEGEN PHARMACEUTICALS INC-2019SCISPO00079

PATIENT

DRUGS (3)
  1. GABAPENTIN CAPSULES [Suspect]
     Active Substance: GABAPENTIN
     Dosage: 1 DF, UNK
     Route: 065
     Dates: start: 20181207
  2. GABAPENTIN CAPSULES [Suspect]
     Active Substance: GABAPENTIN
     Indication: FIBROMYALGIA
     Dosage: 1 DF, UNK
     Route: 065
     Dates: start: 20181206
  3. GABAPENTIN CAPSULES [Suspect]
     Active Substance: GABAPENTIN
     Dosage: UNK
     Route: 065
     Dates: start: 20181226, end: 20190109

REACTIONS (3)
  - Constipation [Recovered/Resolved]
  - Hyperchlorhydria [Recovered/Resolved]
  - Abdominal pain [Recovered/Resolved]
